FAERS Safety Report 8429736-2 (Version None)
Quarter: 2012Q2

REPORT INFORMATION
  Report Type: 
  Country: None (occurrence: None)
  Receive Date: 20120612
  Receipt Date: 20120608
  Transmission Date: 20120825
  Serious: Yes (Other)
  Sender: FDA-Public Use
  Company Number: US-PFIZER INC-2009314317

PATIENT
  Sex: Male

DRUGS (4)
  1. DILANTIN [Suspect]
     Dosage: 30 MG, ONE CAPSULE EVERY NIGHT AT BEDTIME
     Route: 048
  2. DILANTIN [Suspect]
     Dosage: 100 MG, FOUR CAPSULES AT BEDTIME
     Route: 048
  3. DILANTIN [Suspect]
     Dosage: 100 MG, UNK
     Route: 048
  4. DILANTIN [Suspect]
     Dosage: 100 MG, THREE CAPSULE EVERY NIGHT AT BED TIME
     Route: 048

REACTIONS (1)
  - STEVENS-JOHNSON SYNDROME [None]
